FAERS Safety Report 25765769 (Version 1)
Quarter: 2025Q3

REPORT INFORMATION
  Report Type: Spontaneous
  Country: US (occurrence: US)
  Receive Date: 20250905
  Receipt Date: 20250905
  Transmission Date: 20251021
  Serious: No
  Sender: DOMPE FARMACEUTICI
  Company Number: US-FARMAPROD-202407-2430

PATIENT
  Sex: Female

DRUGS (16)
  1. OXERVATE [Suspect]
     Active Substance: CENEGERMIN-BKBJ
     Indication: Neurotrophic keratopathy
     Route: 047
     Dates: start: 20240607
  2. OXERVATE [Suspect]
     Active Substance: CENEGERMIN-BKBJ
  3. OXERVATE [Suspect]
     Active Substance: CENEGERMIN-BKBJ
  4. TYRVAYA [Concomitant]
     Active Substance: VARENICLINE TARTRATE
  5. EYSUVIS [Concomitant]
     Active Substance: LOTEPREDNOL ETABONATE
  6. CEQUA [Concomitant]
     Active Substance: CYCLOSPORINE
  7. XIIDRA [Concomitant]
     Active Substance: LIFITEGRAST
  8. RESTASIS [Concomitant]
     Active Substance: CYCLOSPORINE
  9. FISH OIL [Concomitant]
     Active Substance: FISH OIL
  10. VITAMIN B12 [Concomitant]
     Active Substance: CYANOCOBALAMIN
  11. IVIZIA [Concomitant]
     Active Substance: POVIDONE
  12. UNSPECIFIED INGREDIENT [Concomitant]
     Active Substance: UNSPECIFIED INGREDIENT
  13. TRAMADOL [Concomitant]
     Active Substance: TRAMADOL
  14. LUBRICATING EYE DROP [Concomitant]
  15. EVEXIA [Concomitant]
  16. VITAMIN B12 [Concomitant]
     Active Substance: CYANOCOBALAMIN

REACTIONS (2)
  - Eye pain [Not Recovered/Not Resolved]
  - Ocular discomfort [Unknown]
